FAERS Safety Report 5562127-0 (Version None)
Quarter: 2007Q4

REPORT INFORMATION
  Report Type: 
  Country: None (occurrence: None)
  Receive Date: 20071215
  Receipt Date: 20061201
  Transmission Date: 20080405
  Serious: No
  Sender: FDA-Public Use
  Company Number: US-AMGEN-US196739

PATIENT
  Sex: Female
  Weight: 68.1 kg

DRUGS (11)
  1. ENBREL [Suspect]
     Indication: RHEUMATOID ARTHRITIS
     Route: 058
     Dates: start: 20040629
  2. METHOTREXATE [Concomitant]
     Route: 065
     Dates: start: 19940101
  3. FOLIC ACID [Concomitant]
     Route: 065
  4. CELEBREX [Concomitant]
     Route: 065
  5. FOSAMAX [Concomitant]
     Route: 065
  6. ASPIRIN [Concomitant]
     Route: 065
  7. CALCIUM [Concomitant]
     Route: 065
  8. VITAMIN D [Concomitant]
     Route: 065
  9. XALATAN [Concomitant]
     Route: 047
  10. BETIMOL [Concomitant]
     Route: 047
  11. VITAMIN CAP [Concomitant]
     Route: 065

REACTIONS (3)
  - FATIGUE [None]
  - RHEUMATOID ARTHRITIS [None]
  - URINARY TRACT INFECTION [None]
